FAERS Safety Report 9535004 (Version 2)
Quarter: 2013Q4

REPORT INFORMATION
  Report Type: Spontaneous
  Country: US (occurrence: US)
  Receive Date: 20130918
  Receipt Date: 20131009
  Transmission Date: 20140711
  Serious: Yes (Other)
  Sender: FDA-Public Use
  Company Number: US-TEVA-432368USA

PATIENT
  Age: 46 Year
  Sex: Female
  Weight: 93.52 kg

DRUGS (5)
  1. PARAGARD 380A [Suspect]
     Indication: CONTRACEPTION
     Route: 015
     Dates: start: 20120321
  2. PROZAC [Concomitant]
     Indication: DEPRESSION
  3. LEVOTHYROXINE [Concomitant]
     Indication: HYPOTHYROIDISM
  4. TOPAMAX [Concomitant]
     Indication: MIGRAINE
  5. TOPAMAX [Concomitant]
     Indication: DEPRESSION

REACTIONS (1)
  - Device dislocation [Not Recovered/Not Resolved]
